FAERS Safety Report 13236901 (Version 1)
Quarter: 2017Q1

REPORT INFORMATION
  Report Type: Spontaneous
  Country: US (occurrence: US)
  Receive Date: 20170215
  Receipt Date: 20170215
  Transmission Date: 20170428
  Serious: Yes (Other)
  Sender: FDA-Public Use
  Company Number: US-SA-2017SA022115

PATIENT
  Age: 57 Year
  Sex: Female

DRUGS (5)
  1. ARAVA [Suspect]
     Active Substance: LEFLUNOMIDE
     Route: 065
     Dates: start: 200801, end: 20160706
  2. ASPIRINE [Concomitant]
     Active Substance: ASPIRIN
     Route: 065
  3. XELJANZ [Suspect]
     Active Substance: TOFACITINIB CITRATE
     Indication: RHEUMATOID ARTHRITIS
     Route: 065
     Dates: start: 20160202
  4. PREDNISONE. [Suspect]
     Active Substance: PREDNISONE
     Route: 065
  5. XELJANZ [Suspect]
     Active Substance: TOFACITINIB CITRATE
     Indication: RHEUMATOID ARTHRITIS
     Route: 065
     Dates: end: 20160706

REACTIONS (5)
  - Spinal disorder [Unknown]
  - Back pain [Unknown]
  - Rheumatoid arthritis [Not Recovered/Not Resolved]
  - Incomplete spinal fusion [Unknown]
  - Spinal column stenosis [Unknown]

NARRATIVE: CASE EVENT DATE: 2010
